FAERS Safety Report 12114517 (Version 1)
Quarter: 2016Q1

REPORT INFORMATION
  Report Type: Spontaneous
  Country: US (occurrence: None)
  Receive Date: 20160224
  Receipt Date: 20160224
  Transmission Date: 20160526
  Serious: No
  Sender: FDA-Public Use
  Company Number: None

PATIENT
  Age: 45 Year
  Sex: Female

DRUGS (2)
  1. GRANIX [Suspect]
     Active Substance: TBO-FILGRASTIM
     Indication: NEOPLASM MALIGNANT
     Route: 058
     Dates: start: 201512
  2. HYDROCO/APAP [Concomitant]
     Active Substance: ACETAMINOPHEN\HYDROCODONE

REACTIONS (5)
  - Product quality issue [None]
  - Malaise [None]
  - Product tampering [None]
  - Fatigue [None]
  - Pain [None]

NARRATIVE: CASE EVENT DATE: 201602
